FAERS Safety Report 9249648 (Version 1)
Quarter: 2013Q2

REPORT INFORMATION
  Report Type: Spontaneous
  Country: US (occurrence: US)
  Receive Date: 20130423
  Receipt Date: 20130423
  Transmission Date: 20140414
  Serious: No
  Sender: FDA-Public Use
  Company Number: US-ASTRAZENECA-2013SE21287

PATIENT
  Age: 77 Year
  Sex: Male
  Weight: 81.6 kg

DRUGS (10)
  1. CRESTOR [Suspect]
     Indication: BLOOD CHOLESTEROL INCREASED
     Route: 048
     Dates: start: 2003
  2. BRILINTA [Suspect]
     Route: 048
     Dates: start: 20130327
  3. LISINOPRIL [Suspect]
     Route: 048
     Dates: start: 2003
  4. ASPIRIN [Suspect]
     Dates: start: 2013
  5. GLUCOPHAGE [Concomitant]
     Indication: DIABETES MELLITUS
  6. ALOPURINOL [Concomitant]
     Indication: URINE DELTA AMINOLEVULINATE
  7. CARVEDILOL [Concomitant]
     Indication: CARDIAC DISORDER
  8. GLIPIZIDE [Concomitant]
     Indication: DIABETES MELLITUS
  9. VIT D [Concomitant]
  10. MULTIVITAMIN [Concomitant]

REACTIONS (1)
  - Haemorrhage [Recovered/Resolved]
